FAERS Safety Report 5981562-X (Version None)
Quarter: 2008Q4

REPORT INFORMATION
  Report Type: 
  Country: None (occurrence: None)
  Receive Date: 20081202
  Receipt Date: 20081119
  Transmission Date: 20090506
  Serious: Yes (Hospitalization)
  Sender: FDA-Public Use
  Company Number: SPV1-2008-02550

PATIENT
  Age: 50 Year
  Sex: Male

DRUGS (1)
  1. FOSRENOL [Suspect]
     Dosage: 2000 MG, WITH EACH MEAL,  ORAL, 1000 MG, WITH EACH SNACK, ORAL
     Route: 048

REACTIONS (5)
  - ABDOMINAL DISCOMFORT [None]
  - COUGH [None]
  - MALAISE [None]
  - NASOPHARYNGITIS [None]
  - PANCREATITIS [None]
